FAERS Safety Report 8067078-8 (Version None)
Quarter: 2012Q1

REPORT INFORMATION
  Report Type: 
  Country: None (occurrence: None)
  Receive Date: 20120124
  Receipt Date: 20120119
  Transmission Date: 20120608
  Serious: Yes (Other)
  Sender: FDA-Public Use
  Company Number: US-PFIZER INC-2011243353

PATIENT
  Sex: Female
  Weight: 66 kg

DRUGS (2)
  1. LISINOPRIL [Concomitant]
     Indication: HYPERTENSION
     Dosage: UNK
  2. LIPITOR [Suspect]
     Indication: BLOOD CHOLESTEROL INCREASED
     Dosage: 20 MG, 1X/DAY
     Route: 048

REACTIONS (7)
  - WEIGHT DECREASED [None]
  - LACRIMATION INCREASED [None]
  - MUSCLE SPASMS [None]
  - READING DISORDER [None]
  - SINUSITIS [None]
  - TREMOR [None]
  - BLOOD PRESSURE ABNORMAL [None]
